FAERS Safety Report 9252417 (Version 1)
Quarter: 2013Q2

REPORT INFORMATION
  Report Type: Spontaneous
  Country: US (occurrence: US)
  Receive Date: 20130424
  Receipt Date: 20130424
  Transmission Date: 20140414
  Serious: Yes (Hospitalization)
  Sender: FDA-Public Use
  Company Number: US-ALEXION-A201300861

PATIENT
  Sex: Female

DRUGS (1)
  1. SOLIRIS 300MG [Suspect]
     Indication: HAEMOLYTIC URAEMIC SYNDROME
     Dosage: 200 MG, UNK
     Route: 042

REACTIONS (3)
  - Enterobacter infection [Recovered/Resolved]
  - Salpingitis [Recovered/Resolved]
  - Urinary tract infection [Recovered/Resolved]
